FAERS Safety Report 11754274 (Version 1)
Quarter: 2015Q4

REPORT INFORMATION
  Report Type: Spontaneous
  Country: US (occurrence: None)
  Receive Date: 20151118
  Receipt Date: 20151118
  Transmission Date: 20160304
  Serious: Yes (Hospitalization)
  Sender: FDA-Public Use
  Company Number: 2015000053

PATIENT
  Age: 66 Year
  Sex: Male

DRUGS (3)
  1. PAROXETINE (PAROXETINE HYDROCHLORIDE) [Suspect]
     Active Substance: PAROXETINE\PAROXETINE HYDROCHLORIDE
     Indication: AFFECTIVE DISORDER
  2. PAROXETINE (PAROXETINE HYDROCHLORIDE) [Suspect]
     Active Substance: PAROXETINE\PAROXETINE HYDROCHLORIDE
     Indication: POST-TRAUMATIC STRESS DISORDER
  3. TRAZODONE [Suspect]
     Active Substance: TRAZODONE HYDROCHLORIDE
     Indication: INSOMNIA
     Dosage: AS NEEDED FOR INSOMNIA

REACTIONS (6)
  - Serotonin syndrome [None]
  - Hyponatraemia [None]
  - Off label use [None]
  - Inappropriate antidiuretic hormone secretion [None]
  - Rhabdomyolysis [None]
  - Urine output decreased [None]
